FAERS Safety Report 26051653 (Version 2)
Quarter: 2025Q4

REPORT INFORMATION
  Report Type: Spontaneous
  Country: EU (occurrence: EU)
  Receive Date: 20251117
  Receipt Date: 20251124
  Transmission Date: 20260119
  Serious: Yes (Other)
  Sender: BAUSCH AND LOMB
  Company Number: EU-EMB-M202406174-1

PATIENT
  Sex: Female

DRUGS (10)
  1. AZATHIOPRINE [Suspect]
     Active Substance: AZATHIOPRINE
     Indication: Crohn^s disease
     Dosage: IMPRECISE DATES
     Route: 064
     Dates: start: 202407, end: 202409
  2. AZATHIOPRINE [Suspect]
     Active Substance: AZATHIOPRINE
     Indication: Crohn^s disease
  3. PROGESTERONE [Suspect]
     Active Substance: PROGESTERONE
     Indication: Prophylaxis of abortion
     Dosage: 300 MG/D
     Route: 064
     Dates: start: 202404, end: 202407
  4. PREDNISOLONE [Suspect]
     Active Substance: PREDNISOLONE
     Indication: Crohn^s disease
     Dosage: CONTRADICTORY INFORMATION FROM THE PATIENT REGARDING THE PERIODS OF USE: APPLIED TWICE DURING THE PE
     Route: 064
     Dates: start: 202407, end: 202409
  5. PREDNISOLONE [Suspect]
     Active Substance: PREDNISOLONE
     Indication: Crohn^s disease
  6. HUMIRA [Suspect]
     Active Substance: ADALIMUMAB
     Indication: Crohn^s disease
     Route: 064
     Dates: start: 202409, end: 202412
  7. HUMIRA [Suspect]
     Active Substance: ADALIMUMAB
     Indication: Crohn^s disease
  8. ACYCLOVIR [Concomitant]
     Active Substance: ACYCLOVIR
     Indication: Genital herpes
     Dosage: UP TO 1200 MG/D AS NEEDED (NO DETAILS KNOWN)
     Route: 064
  9. BUDESONIDE [Concomitant]
     Active Substance: BUDESONIDE
     Indication: Crohn^s disease
     Dosage: POSSIBLY LONGER
     Route: 064
     Dates: start: 202406, end: 202407
  10. BUDESONIDE [Concomitant]
     Active Substance: BUDESONIDE
     Indication: Crohn^s disease

REACTIONS (2)
  - Cardiac septal hypertrophy [Recovered/Resolved]
  - Foetal exposure during pregnancy [Unknown]

NARRATIVE: CASE EVENT DATE: 20250201
